FAERS Safety Report 9386949 (Version 1)
Quarter: 2013Q3

REPORT INFORMATION
  Report Type: Spontaneous
  Country: CN (occurrence: CN)
  Receive Date: 20130708
  Receipt Date: 20130708
  Transmission Date: 20140515
  Serious: Yes (Hospitalization)
  Sender: FDA-Public Use
  Company Number: CN-MYLANLABS-2013S1014118

PATIENT
  Age: 51 Year
  Sex: Female

DRUGS (2)
  1. CLARITHROMYCIN [Suspect]
     Indication: HELICOBACTER GASTRITIS
     Route: 048
  2. RABEPRAZOLE [Interacting]
     Indication: HELICOBACTER GASTRITIS
     Route: 048

REACTIONS (2)
  - Dissociative disorder [Recovered/Resolved]
  - Drug interaction [Recovered/Resolved]
